FAERS Safety Report 10573901 (Version 4)
Quarter: 2015Q2

REPORT INFORMATION
  Report Type: Report from Study
  Country: US (occurrence: US)
  Receive Date: 20141110
  Receipt Date: 20150407
  Transmission Date: 20150821
  Serious: Yes (Death, Hospitalization, Other)
  Sender: FDA-Public Use
  Company Number: PHEH2014US022063

PATIENT
  Age: 84 Year
  Sex: Male
  Weight: 49.89 kg

DRUGS (1)
  1. EXJADE [Suspect]
     Active Substance: DEFERASIROX
     Indication: LYMPHOCYTIC LEUKAEMIA
     Dosage: 1000 MG, QD (MIX AND DRINK 2 TAB)
     Route: 048
     Dates: start: 201208

REACTIONS (5)
  - Ascites [Unknown]
  - Malignant neoplasm progression [Unknown]
  - Lymphocytic leukaemia [Unknown]
  - Hemiparesis [Fatal]
  - Cerebrovascular accident [Fatal]

NARRATIVE: CASE EVENT DATE: 20140913
